FAERS Safety Report 10584999 (Version 3)
Quarter: 2015Q1

REPORT INFORMATION
  Report Type: Report from Study
  Country: JP (occurrence: JP)
  Receive Date: 20141114
  Receipt Date: 20150122
  Transmission Date: 20150720
  Serious: Yes (Hospitalization, Other)
  Sender: FDA-Public Use
  Company Number: JP-AMGEN-JPNCT2013047691

PATIENT
  Age: 81 Year
  Sex: Female
  Weight: 55 kg

DRUGS (40)
  1. ONEALFA [Concomitant]
     Active Substance: ALFACALCIDOL
     Dosage: UNK
     Route: 048
  2. SELBEX [Concomitant]
     Active Substance: TEPRENONE
     Dosage: UNK
     Route: 048
  3. ZYLORIC [Concomitant]
     Active Substance: ALLOPURINOL
     Dosage: UNK
     Route: 048
  4. LOXONIN [Concomitant]
     Active Substance: LOXOPROFEN SODIUM
     Dosage: UNK
     Route: 048
  5. RINDERON VG [Concomitant]
     Active Substance: BETAMETHASONE VALERATE\GENTAMICIN SULFATE
     Dosage: UNK
     Route: 061
  6. PELTAZON [Concomitant]
     Dosage: UNK
     Route: 048
  7. SOLYUGEN F [Concomitant]
     Indication: CATHETERISATION VENOUS
     Dosage: 1 DF, QD
     Route: 041
     Dates: start: 20130904, end: 20130904
  8. KREMEZIN [Concomitant]
     Active Substance: ACTIVATED CHARCOAL
     Dosage: UNK
     Route: 048
  9. OLMETEC [Concomitant]
     Active Substance: OLMESARTAN MEDOXOMIL
     Dosage: UNK
     Route: 048
  10. MYONAL [Concomitant]
     Active Substance: EPERISONE HYDROCHLORIDE
     Dosage: UNK
     Route: 048
  11. ALFAROL [Concomitant]
     Active Substance: ALFACALCIDOL
     Dosage: UNK
     Route: 048
  12. KALIMATE [Concomitant]
     Active Substance: CALCIUM POLYSTYRENE SULFONATE
     Dosage: UNK
     Route: 048
  13. ACTIT                              /00733001/ [Concomitant]
     Indication: CATHETERISATION VENOUS
     Dosage: 1 DF, QD
     Route: 041
     Dates: start: 20130904, end: 20130904
  14. SEFMAZON [Concomitant]
     Active Substance: CEFAZOLIN
     Indication: INFECTION PROPHYLAXIS
     Dosage: 1 DF, BID
     Route: 041
     Dates: start: 20130904, end: 20130904
  15. PURSENNIDE                         /00571901/ [Concomitant]
     Dosage: UNK
     Route: 048
  16. LAGNOS [Concomitant]
     Dosage: UNK
     Route: 048
  17. MUCOSTA [Concomitant]
     Active Substance: REBAMIPIDE
     Dosage: UNK
     Route: 048
  18. RIVOTRIL [Concomitant]
     Active Substance: CLONAZEPAM
     Dosage: UNK
     Route: 048
  19. ADALAT CC [Concomitant]
     Active Substance: NIFEDIPINE
     Dosage: UNK
     Route: 048
  20. INFREE [Concomitant]
     Active Substance: INDOMETHACIN
     Dosage: UNK
     Route: 048
  21. ARTIST [Concomitant]
     Active Substance: CARVEDILOL
     Dosage: UNK
     Route: 048
  22. LAC-B [Concomitant]
     Active Substance: BIFIDOBACTERIUM SPP.
     Dosage: UNK
     Route: 048
  23. CARDENALIN [Concomitant]
     Active Substance: DOXAZOSIN MESYLATE
     Dosage: UNK
     Route: 048
  24. PARIET [Concomitant]
     Active Substance: RABEPRAZOLE SODIUM
     Dosage: UNK
     Route: 048
  25. DARBEPOETIN ALFA - KHK [Suspect]
     Active Substance: DARBEPOETIN ALFA
     Indication: NEPHROGENIC ANAEMIA
     Dosage: 30 MUG, Q4WK
     Route: 058
     Dates: start: 20110610, end: 20140605
  26. TENORMIN [Concomitant]
     Active Substance: ATENOLOL
     Dosage: UNK
     Route: 048
  27. LUVOX [Concomitant]
     Active Substance: FLUVOXAMINE MALEATE
     Dosage: UNK
     Route: 048
  28. GLUCOBAY [Concomitant]
     Active Substance: ACARBOSE
     Dosage: UNK
     Route: 048
  29. ALDOMET [Concomitant]
     Active Substance: METHYLDOPA
     Dosage: UNK
     Route: 048
  30. VITAMINS NOS [Concomitant]
     Active Substance: VITAMINS
     Dosage: UNK
     Route: 048
  31. CYTOTEC [Concomitant]
     Active Substance: MISOPROSTOL
     Dosage: UNK
     Route: 048
  32. LASIX [Concomitant]
     Active Substance: FUROSEMIDE
     Dosage: UNK
     Route: 048
  33. URINORM [Concomitant]
     Active Substance: BENZBROMARONE
     Dosage: UNK
     Route: 048
  34. LIVALO [Concomitant]
     Active Substance: PITAVASTATIN CALCIUM
     Dosage: UNK
     Route: 048
  35. EVISTA [Concomitant]
     Active Substance: RALOXIFENE HYDROCHLORIDE
     Dosage: UNK
     Route: 048
  36. DAIKENTYUTO [Concomitant]
     Active Substance: HERBALS
     Dosage: UNK
     Route: 048
  37. LYRICA [Concomitant]
     Active Substance: PREGABALIN
     Dosage: UNK
     Route: 048
  38. ISOTONIC SODIUM CHLORIDE SOLUTION [Concomitant]
     Active Substance: SODIUM CHLORIDE
     Dosage: 1 DF, BID
     Route: 041
     Dates: start: 20130831, end: 20130903
  39. FEBURIC [Concomitant]
     Active Substance: FEBUXOSTAT
     Dosage: UNK
     Route: 048
  40. KREMEZIN [Concomitant]
     Active Substance: ACTIVATED CHARCOAL
     Indication: CHRONIC KIDNEY DISEASE
     Dosage: UNK
     Route: 048

REACTIONS (17)
  - Abdominal hernia [Recovered/Resolved]
  - Hypertension [Recovering/Resolving]
  - Hypoacusis [Recovered/Resolved]
  - Irritable bowel syndrome [Recovering/Resolving]
  - Cough [Recovered/Resolved]
  - Angina pectoris [Recovered/Resolved]
  - Back pain [Recovering/Resolving]
  - Urinary tract infection [Recovered/Resolved]
  - Venous thrombosis limb [Recovering/Resolving]
  - Deep vein thrombosis [Recovered/Resolved]
  - Myoclonus [Recovered/Resolved]
  - Nasopharyngitis [Recovered/Resolved]
  - Pneumonia [Recovered/Resolved]
  - Constipation [Not Recovered/Not Resolved]
  - Oedema [Recovering/Resolving]
  - Hyperkalaemia [Recovering/Resolving]
  - Urinary tract infection [Recovered/Resolved]

NARRATIVE: CASE EVENT DATE: 20110823
